FAERS Safety Report 12541051 (Version 2)
Quarter: 2016Q3

REPORT INFORMATION
  Report Type: Spontaneous
  Country: US (occurrence: US)
  Receive Date: 20160708
  Receipt Date: 20160725
  Transmission Date: 20161109
  Serious: Yes (Other)
  Sender: FDA-Public Use
  Company Number: US-GLAXOSMITHKLINE-US2016096191

PATIENT
  Age: 79 Year
  Sex: Male

DRUGS (2)
  1. EXCEDRIN EXTRA STRENGTH [Suspect]
     Active Substance: ACETAMINOPHEN\ASPIRIN\CAFFEINE
     Indication: MYALGIA
     Dosage: UNK (1-2 PILLS, 3 TO 4 TIMES A DAY)
     Route: 048
     Dates: end: 2015
  2. ACETAMINOPHEN. [Suspect]
     Active Substance: ACETAMINOPHEN
     Indication: PAIN
     Dosage: UNK

REACTIONS (6)
  - Drug ineffective [Unknown]
  - Diabetes mellitus [Not Recovered/Not Resolved]
  - Off label use [Unknown]
  - Spinal fusion surgery [Not Recovered/Not Resolved]
  - Tooth disorder [Not Recovered/Not Resolved]
  - Dysphagia [Not Recovered/Not Resolved]
